FAERS Safety Report 19604487 (Version 2)
Quarter: 2021Q3

REPORT INFORMATION
  Report Type: Spontaneous
  Country: FI (occurrence: FI)
  Receive Date: 20210723
  Receipt Date: 20210902
  Transmission Date: 20211014
  Serious: Yes (Death, Other)
  Sender: FDA-Public Use
  Company Number: FI-009507513-2107FIN004166

PATIENT
  Age: 86 Year
  Sex: Male

DRUGS (4)
  1. CANCIDAS [Suspect]
     Active Substance: CASPOFUNGIN ACETATE
     Dosage: 50 MG ONCE A DAY; CONTINUATION (TOTAL 14 DAYS)
     Route: 042
     Dates: start: 2008, end: 2008
  2. VORICONAZOLE. [Suspect]
     Active Substance: VORICONAZOLE
     Indication: SYSTEMIC CANDIDA
     Dosage: UNK
     Dates: start: 200806
  3. CANCIDAS [Suspect]
     Active Substance: CASPOFUNGIN ACETATE
     Dosage: 70 MG ONCE A DAY; 6 DAYS
     Route: 042
     Dates: start: 200806, end: 200806
  4. CANCIDAS [Suspect]
     Active Substance: CASPOFUNGIN ACETATE
     Indication: SYSTEMIC CANDIDA
     Dosage: 70 MG ONCE A DAY; INITIAL DOSE (TOTAL 14 DAYS)
     Route: 042
     Dates: start: 2008, end: 2008

REACTIONS (2)
  - Staphylococcal sepsis [Fatal]
  - Pathogen resistance [Unknown]

NARRATIVE: CASE EVENT DATE: 20080606
